FAERS Safety Report 25515955 (Version 1)
Quarter: 2025Q3

REPORT INFORMATION
  Report Type: Spontaneous
  Country: US (occurrence: US)
  Receive Date: 20250704
  Receipt Date: 20250704
  Transmission Date: 20251021
  Serious: No
  Sender: BIOVITRUM
  Company Number: US-BIOVITRUM-2025-US-009103

PATIENT
  Age: 82 Year
  Sex: Female

DRUGS (1)
  1. VONJO [Suspect]
     Active Substance: PACRITINIB
     Indication: Myelofibrosis
     Route: 048
     Dates: start: 20230505

REACTIONS (5)
  - Product dose omission issue [Unknown]
  - Oxygen saturation decreased [Unknown]
  - Splenomegaly [Unknown]
  - General physical health deterioration [Unknown]
  - Activities of daily living decreased [Unknown]
